FAERS Safety Report 23689169 (Version 2)
Quarter: 2024Q2

REPORT INFORMATION
  Report Type: Spontaneous
  Country: GB (occurrence: GB)
  Receive Date: 20240330
  Receipt Date: 20240422
  Transmission Date: 20240716
  Serious: Yes (Other)
  Sender: FDA-Public Use
  Company Number: GB-MYLANLABS-2024M1021859

PATIENT

DRUGS (2)
  1. PREGABALIN [Suspect]
     Active Substance: PREGABALIN
     Indication: Spinal cord injury
     Dosage: UNKNOWN, DOSE INCREASED
     Route: 065
  2. PREGABALIN [Suspect]
     Active Substance: PREGABALIN
     Indication: Spinal column injury

REACTIONS (17)
  - Therapeutic product effect decreased [Unknown]
  - Intentional product misuse [Unknown]
  - Prescription drug used without a prescription [Unknown]
  - Eating disorder [Recovered/Resolved]
  - Discomfort [Recovered/Resolved]
  - Withdrawal syndrome [Recovered/Resolved]
  - Drug dependence [Recovered/Resolved]
  - Feeling abnormal [Recovered/Resolved]
  - Dizziness [Recovered/Resolved]
  - Fatigue [Recovered/Resolved]
  - Memory impairment [Recovered/Resolved]
  - Anxiety [Recovered/Resolved]
  - Tremor [Recovered/Resolved]
  - Insomnia [Recovered/Resolved]
  - Vomiting [Recovered/Resolved]
  - Euphoric mood [Unknown]
  - Diarrhoea [Recovered/Resolved]
